FAERS Safety Report 5472219-2 (Version None)
Quarter: 2007Q3

REPORT INFORMATION
  Report Type: 
  Country: None (occurrence: None)
  Receive Date: 20070926
  Receipt Date: 20070911
  Transmission Date: 20080115
  Serious: Yes (Hospitalization)
  Sender: FDA-Public Use
  Company Number: 2007US002184

PATIENT
  Age: 69 Year
  Sex: Female
  Weight: 90.7 kg

DRUGS (6)
  1. AMEVIVE [Suspect]
     Indication: PSORIASIS
     Dosage: INTRAMUSCULAR
     Route: 030
     Dates: start: 20050823, end: 20051108
  2. THEOPHYLLINE [Concomitant]
  3. TOPROL-XL [Concomitant]
  4. ALTACE [Concomitant]
  5. FOLIC ACID [Concomitant]
  6. ALBUTEROL (SALBUTAMOL SULFATE) [Concomitant]

REACTIONS (4)
  - ASTHMA [None]
  - BLOOD GLUCOSE INCREASED [None]
  - CARDIAC FAILURE CONGESTIVE [None]
  - CONDITION AGGRAVATED [None]
